FAERS Safety Report 23945861 (Version 1)
Quarter: 2024Q2

REPORT INFORMATION
  Report Type: Spontaneous
  Country: US (occurrence: US)
  Receive Date: 20240606
  Receipt Date: 20240606
  Transmission Date: 20240716
  Serious: Yes (Other)
  Sender: FDA-Public Use
  Company Number: US-PFIZER INC-202400187138

PATIENT
  Age: 65 Year
  Sex: Male
  Weight: 77.11 kg

DRUGS (1)
  1. XELJANZ XR [Suspect]
     Active Substance: TOFACITINIB CITRATE
     Indication: Rheumatoid arthritis
     Dosage: 11 MG, 1X/DAY
     Route: 048
     Dates: start: 2023

REACTIONS (6)
  - Osteosclerosis [Unknown]
  - Musculoskeletal disorder [Unknown]
  - Nerve compression [Unknown]
  - Hypoaesthesia [Unknown]
  - Hip surgery [Unknown]
  - Osteoarthritis [Unknown]
